FAERS Safety Report 11276369 (Version 1)
Quarter: 2015Q3

REPORT INFORMATION
  Report Type: Spontaneous
  Country: US (occurrence: None)
  Receive Date: 20150715
  Receipt Date: 20150715
  Transmission Date: 20151125
  Serious: Yes (Hospitalization, Other)
  Sender: FDA-Public Use
  Company Number: None

PATIENT
  Age: 32 Year
  Sex: Female
  Weight: 61.24 kg

DRUGS (1)
  1. MIRENA [Suspect]
     Active Substance: LEVONORGESTREL

REACTIONS (8)
  - Weight decreased [None]
  - Emotional disorder [None]
  - Haemorrhage [None]
  - Decreased appetite [None]
  - Anger [None]
  - Depressed mood [None]
  - Anxiety [None]
  - Vaginal haemorrhage [None]
